FAERS Safety Report 17580345 (Version 1)
Quarter: 2020Q1

REPORT INFORMATION
  Report Type: Spontaneous
  Country: US (occurrence: US)
  Receive Date: 20200320
  Receipt Date: 20200320
  Transmission Date: 20200409
  Serious: No
  Sender: FDA-Public Use
  Company Number: None

PATIENT
  Age: 31 Year
  Sex: Female

DRUGS (2)
  1. OZURDEX [Suspect]
     Active Substance: DEXAMETHASONE
     Indication: MACULAR DEGENERATION
     Dosage: ?          OTHER DOSE:1 INTO BOTH EYES;OTHER FREQUENCY:Q3M;OTHER ROUTE:INSERT?
     Dates: start: 20180613
  2. PREDNISOLONE. [Concomitant]
     Active Substance: PREDNISOLONE

REACTIONS (2)
  - Blindness [None]
  - Product dose omission [None]

NARRATIVE: CASE EVENT DATE: 20200319
